FAERS Safety Report 15343578 (Version 2)
Quarter: 2018Q3

REPORT INFORMATION
  Report Type: Spontaneous
  Country: US (occurrence: US)
  Receive Date: 20180903
  Receipt Date: 20180906
  Transmission Date: 20181010
  Serious: No
  Sender: FDA-Public Use
  Company Number: US-PFIZER INC-2016583698

PATIENT
  Age: 60 Year
  Sex: Male
  Weight: 88 kg

DRUGS (48)
  1. LYRICA [Suspect]
     Active Substance: PREGABALIN
     Indication: MIGRAINE
     Dosage: 200 MG, 3X/DAY
     Route: 048
     Dates: start: 2004
  2. GABAPENTIN. [Concomitant]
     Active Substance: GABAPENTIN
     Dosage: 300 MG, 3X/DAY
     Route: 048
     Dates: start: 20161024
  3. MAGNESIUM [Concomitant]
     Active Substance: MAGNESIUM
     Dosage: UNK
  4. PROMETHAZINE HCL [Concomitant]
     Active Substance: PROMETHAZINE HYDROCHLORIDE
     Indication: HYPERSENSITIVITY
     Dosage: 12.5 MG, AS NEEDED (1 TABLET DAILY)
     Route: 048
     Dates: start: 20160427
  5. TAMSULOSIN [Concomitant]
     Active Substance: TAMSULOSIN
     Indication: BENIGN PROSTATIC HYPERPLASIA
     Dosage: 0.8 MG, 1X/DAY (2 CAPSULES BY MOUTH AT BEDTIME)
  6. WARFARIN [Concomitant]
     Active Substance: WARFARIN
     Dosage: 15 MG, 2X/WEEK (HE MAY TAKE 3 TABLETS)
     Route: 048
  7. BABY ASPIRIN [Concomitant]
     Active Substance: ASPIRIN
     Indication: CARDIAC DISORDER
     Dosage: 81 MG, 1X/DAY
     Route: 048
     Dates: start: 2013
  8. ALFUZOSIN ER [Concomitant]
     Indication: BENIGN PROSTATIC HYPERPLASIA
     Dosage: 10 MG, 1X/DAY
     Route: 048
     Dates: start: 2017
  9. ACETAMINOPHEN. [Concomitant]
     Active Substance: ACETAMINOPHEN
     Indication: ARTHRITIS
  10. LYRICA [Suspect]
     Active Substance: PREGABALIN
     Indication: NECK PAIN
     Dosage: 200 MG, 3X/DAY
     Route: 048
     Dates: start: 2006
  11. LYRICA [Suspect]
     Active Substance: PREGABALIN
     Indication: TEMPOROMANDIBULAR JOINT SYNDROME
     Dosage: 200 MG, 3X/DAY
     Route: 048
     Dates: start: 20161102
  12. DIAZEPAM. [Concomitant]
     Active Substance: DIAZEPAM
     Dosage: 15 MG, DAILY (TAKE 1 TABLET EVERY MORNING AND 2 TABLETS EVERY EVENING)
     Route: 048
     Dates: start: 20151005
  13. METOPROLOL SUCCINATE. [Concomitant]
     Active Substance: METOPROLOL SUCCINATE
     Dosage: 50 MG, 1X/DAY
     Route: 048
     Dates: start: 20151014
  14. WARFARIN [Concomitant]
     Active Substance: WARFARIN
     Dosage: 10 MG, 5 DAYS A WEEK
  15. BABY ASPIRIN [Concomitant]
     Active Substance: ASPIRIN
     Dosage: UNK
     Dates: start: 2015
  16. MONTELUKAST [Concomitant]
     Active Substance: MONTELUKAST SODIUM
     Indication: SINUS CONGESTION
     Dosage: 10 MG, 1X/DAY
     Route: 048
     Dates: start: 201803
  17. PANTOPRAZOLE SODIUM. [Concomitant]
     Active Substance: PANTOPRAZOLE SODIUM
     Indication: GASTROOESOPHAGEAL REFLUX DISEASE
     Dosage: 40 MG, 2X/DAY (BEFORE MEALS)
     Route: 048
  18. LYRICA [Suspect]
     Active Substance: PREGABALIN
     Indication: ARTHROPATHY
  19. DIAZEPAM. [Concomitant]
     Active Substance: DIAZEPAM
     Dosage: 15 MG, DAILY (TAKE 1 TABLET EVERY MORNING AND 2 TABLETS EVERY EVENING)
     Route: 048
     Dates: start: 2008
  20. WARFARIN SODIUM. [Concomitant]
     Active Substance: WARFARIN SODIUM
     Indication: CARDIAC DISORDER
     Dosage: 10 MG, 1X/DAY
     Route: 048
     Dates: start: 20160411
  21. MONTELUKAST [Concomitant]
     Active Substance: MONTELUKAST SODIUM
     Indication: RESPIRATORY TRACT CONGESTION
  22. DULOXETINE DR [Concomitant]
     Active Substance: DULOXETINE
     Indication: ARTHRITIS
  23. ACETAMINOPHEN. [Concomitant]
     Active Substance: ACETAMINOPHEN
     Indication: BACK DISORDER
     Dosage: 500 MG, UNK
     Route: 048
     Dates: start: 1990
  24. LYRICA [Suspect]
     Active Substance: PREGABALIN
     Indication: FIBROMYALGIA
  25. ACETAMINOPHEN. [Concomitant]
     Active Substance: ACETAMINOPHEN
     Dosage: 1000 MG, 3X/DAY (TAKE 2 CAPSULE EVERY 8 HOURS)
     Route: 048
     Dates: start: 20140307
  26. DIAZEPAM. [Concomitant]
     Active Substance: DIAZEPAM
     Indication: ANXIETY
     Dosage: 15 MG, DAILY (ONE IN THE MORNING, 2 IN THE EVENING)
     Route: 048
     Dates: start: 2000
  27. POLYETHYLENE GLYCOL 3350. [Concomitant]
     Active Substance: POLYETHYLENE GLYCOL 3350
     Dosage: 175 G, DAILY [MIX 1 CAPFUL (175 GM) IN 8 OUNCES OF WATER, JUICE, OR TEA]
     Route: 048
     Dates: start: 20150313
  28. RANITIDINE HCL [Concomitant]
     Active Substance: RANITIDINE HYDROCHLORIDE
     Dosage: 150 MG, 1X/DAY (TAKE 1 TABLET AT BEDTIME)
     Route: 048
     Dates: start: 20150911
  29. LORATADINE. [Concomitant]
     Active Substance: LORATADINE
     Indication: HYPERSENSITIVITY
     Dosage: 10 MG, 1X/DAY
     Route: 048
     Dates: start: 2000
  30. PANTOPRAZOLE SODIUM. [Concomitant]
     Active Substance: PANTOPRAZOLE SODIUM
     Indication: GASTROOESOPHAGEAL REFLUX DISEASE
     Dosage: 40 MG, 2X/DAY (30 MINUTES BEFORE BREAKFAST AND DINNER)
     Route: 048
     Dates: start: 20150313
  31. ZYRTEC [Concomitant]
     Active Substance: CETIRIZINE HYDROCHLORIDE
     Dosage: 10 MG, 1X/DAY (AT BEDTIME)
     Route: 048
     Dates: start: 20160311
  32. DULOXETINE DR [Concomitant]
     Active Substance: DULOXETINE
     Indication: DEPRESSION
     Dosage: 60 MG, 1X/DAY
     Route: 048
     Dates: start: 2016
  33. LYRICA [Suspect]
     Active Substance: PREGABALIN
     Indication: BACK DISORDER
  34. DULOXETINE HCL [Concomitant]
     Active Substance: DULOXETINE HYDROCHLORIDE
     Dosage: 60 MG, DAILY
     Route: 048
     Dates: start: 20160523
  35. FERROUS SULFATE. [Concomitant]
     Active Substance: FERROUS SULFATE
     Dosage: 325 MG, 2X/DAY
     Route: 048
     Dates: start: 20150909
  36. FINASTERIDE. [Concomitant]
     Active Substance: FINASTERIDE
     Dosage: 5 MG, 1X/DAY (TAKE ONE EVERYDAY)
     Route: 048
     Dates: start: 20150709
  37. ASPIRIN /00002701/ [Concomitant]
     Active Substance: ASPIRIN
     Dosage: 81 MG, DAILY
     Route: 048
  38. FINASTERIDE. [Concomitant]
     Active Substance: FINASTERIDE
     Indication: BENIGN PROSTATIC HYPERPLASIA
     Dosage: 5 MG, 1X/DAY
     Route: 048
     Dates: start: 2015
  39. METOPROLOL SUCCINATE. [Concomitant]
     Active Substance: METOPROLOL SUCCINATE
     Indication: BLOOD PRESSURE ABNORMAL
     Dosage: 50 MG, 1X/DAY
     Route: 048
     Dates: start: 201803
  40. TAMSULOSIN HCL [Concomitant]
     Active Substance: TAMSULOSIN HYDROCHLORIDE
     Dosage: 0.8 MG, 1X/DAY (TAKE 2 CAPSULES BY MOUTH AT BEDTIME)
     Route: 048
     Dates: start: 20121219
  41. WARFARIN [Concomitant]
     Active Substance: WARFARIN
     Indication: CARDIAC VALVE DISEASE
     Dosage: 10 MG, 1X/DAY (5 MG, 2 TABLETS BY MOUTH, ONCE A DAY)
     Route: 048
  42. WARFARIN [Concomitant]
     Active Substance: WARFARIN
     Dosage: BETWEEN 7.5 MG AND 15 MG
     Route: 048
  43. WARFARIN [Concomitant]
     Active Substance: WARFARIN
     Dosage: 7.5 TWO DAYS A WEEK
  44. DULOXETINE. [Concomitant]
     Active Substance: DULOXETINE
     Indication: DEPRESSION
     Dosage: 60 MG, 1X/DAY
     Route: 048
     Dates: start: 2016
  45. FLUTICASONE. [Concomitant]
     Active Substance: FLUTICASONE
     Indication: HYPERSENSITIVITY
     Dosage: UNK, 1X/DAY (2 SPRAYS IN EACH NOSTRIL)
     Route: 045
     Dates: start: 2003
  46. ACETAMINOPHEN. [Concomitant]
     Active Substance: ACETAMINOPHEN
     Indication: ARTHROPATHY
     Dosage: 2 DF, 2X/DAY
     Route: 048
     Dates: start: 2018
  47. ACETAMINOPHEN. [Concomitant]
     Active Substance: ACETAMINOPHEN
     Indication: SINUS PAIN
  48. RANITIDINE. [Concomitant]
     Active Substance: RANITIDINE
     Indication: DYSPEPSIA
     Dosage: 150 MG, 1X/DAY (ONCE A DAY BY MOUTH PRN)
     Route: 048

REACTIONS (4)
  - International normalised ratio increased [Unknown]
  - International normalised ratio abnormal [Recovering/Resolving]
  - Intentional product use issue [Recovered/Resolved]
  - Pain [Unknown]

NARRATIVE: CASE EVENT DATE: 201706
